FAERS Safety Report 18486117 (Version 3)
Quarter: 2022Q1

REPORT INFORMATION
  Report Type: Spontaneous
  Country: US (occurrence: US)
  Receive Date: 20201110
  Receipt Date: 20220216
  Transmission Date: 20220423
  Serious: No
  Sender: FDA-Public Use
  Company Number: US-PFIZER INC-2020336148

PATIENT
  Age: 81 Year
  Sex: Female
  Weight: 60.78 kg

DRUGS (3)
  1. XELJANZ XR [Suspect]
     Active Substance: TOFACITINIB CITRATE
     Indication: Rheumatoid arthritis
     Dosage: 11 MG, 1X/DAY [IN THE MORNING]
     Route: 048
     Dates: start: 20200924
  2. XELJANZ XR [Suspect]
     Active Substance: TOFACITINIB CITRATE
     Dosage: 11 MG
  3. HYDROXYCHLOROQUINE SULFATE [Concomitant]
     Active Substance: HYDROXYCHLOROQUINE SULFATE
     Dosage: 200 MG, DAILY

REACTIONS (5)
  - Muscle spasms [Recovering/Resolving]
  - Foot deformity [Unknown]
  - Eye disorder [Unknown]
  - Bradyphrenia [Unknown]
  - Ear infection [Unknown]
